FAERS Safety Report 8988735 (Version 4)
Quarter: 2013Q2

REPORT INFORMATION
  Report Type: Spontaneous
  Country: PT (occurrence: PT)
  Receive Date: 20121228
  Receipt Date: 20130507
  Transmission Date: 20140414
  Serious: Yes (Death, Hospitalization, Other)
  Sender: FDA-Public Use
  Company Number: PT-BRISTOL-MYERS SQUIBB COMPANY-17229279

PATIENT
  Age: 59 Year
  Sex: Female

DRUGS (1)
  1. YERVOY [Suspect]
     Indication: MALIGNANT MELANOMA
     Dosage: NO OF INF:3?2ND INFUSION: 270MG: 8-11-2012?3RD INFUSION: 270MG: 29-11-2012
     Dates: start: 20121017

REACTIONS (3)
  - Malignant neoplasm progression [Fatal]
  - Colitis [Recovering/Resolving]
  - Hypokalaemia [Recovering/Resolving]
